FAERS Safety Report 6300439-3 (Version None)
Quarter: 2009Q3

REPORT INFORMATION
  Report Type: 
  Country: None (occurrence: None)
  Receive Date: 20090806
  Receipt Date: 20081002
  Transmission Date: 20100115
  Serious: No
  Sender: FDA-Public Use
  Company Number: US-ABBOTT-08P-163-0479393-00

PATIENT
  Age: 44 Year
  Sex: Female

DRUGS (1)
  1. DEPAKOTE ER [Suspect]
     Indication: BIPOLAR DISORDER
     Dosage: AT HS
     Route: 048
     Dates: start: 20080501

REACTIONS (1)
  - ALOPECIA [None]
